FAERS Safety Report 10202828 (Version 1)
Quarter: 2014Q2

REPORT INFORMATION
  Report Type: Spontaneous
  Country: US (occurrence: US)
  Receive Date: 20140522
  Receipt Date: 20140522
  Transmission Date: 20141212
  Serious: No
  Sender: FDA-Public Use
  Company Number: US-SA-2014SA036208

PATIENT
  Age: 70 Year
  Sex: Female
  Weight: 117.93 kg

DRUGS (4)
  1. SOLOSTAR [Suspect]
     Indication: DEVICE THERAPY
     Dates: start: 2012
  2. SOLOSTAR [Suspect]
     Indication: DEVICE THERAPY
     Dates: start: 2012
  3. LANTUS SOLOSTAR [Suspect]
     Indication: TYPE 2 DIABETES MELLITUS
     Dosage: DOSE:41 UNIT(S)
     Route: 065
     Dates: start: 2012
  4. LANTUS SOLOSTAR [Suspect]
     Indication: TYPE 2 DIABETES MELLITUS
     Dosage: DOSE:41 UNIT(S)
     Route: 065
     Dates: start: 2012

REACTIONS (1)
  - Feeling jittery [Unknown]
